FAERS Safety Report 8071746-1 (Version None)
Quarter: 2012Q1

REPORT INFORMATION
  Report Type: 
  Country: None (occurrence: None)
  Receive Date: 20120125
  Receipt Date: 20120123
  Transmission Date: 20120608
  Serious: Yes (Hospitalization, Disabling)
  Sender: FDA-Public Use
  Company Number: DE-MERCK-1201DEU00031

PATIENT
  Age: 51 Year
  Sex: Male
  Weight: 80 kg

DRUGS (5)
  1. DARUNAVIR [Concomitant]
     Indication: HIV INFECTION
     Route: 048
     Dates: start: 20110630
  2. RITONAVIR [Concomitant]
     Indication: HIV INFECTION
     Route: 048
     Dates: start: 20110630
  3. ZOPICLONE [Concomitant]
     Indication: SLEEP DISORDER
     Route: 048
     Dates: start: 20010101
  4. ISENTRESS [Suspect]
     Indication: HIV INFECTION
     Route: 048
     Dates: start: 20110630
  5. ACYCLOVIR [Concomitant]
     Indication: GENITAL HERPES
     Route: 048
     Dates: start: 20000101

REACTIONS (1)
  - OPTIC NEURITIS [None]
